FAERS Safety Report 15891937 (Version 1)
Quarter: 2019Q1

REPORT INFORMATION
  Report Type: Report from Study
  Country: US (occurrence: US)
  Receive Date: 20190130
  Receipt Date: 20190130
  Transmission Date: 20190417
  Serious: Yes (Other)
  Sender: FDA-Public Use
  Company Number: US-JAZZ-2019-US-000974

PATIENT
  Age: 40 Year
  Sex: Female

DRUGS (56)
  1. VITAMIN D3 [Concomitant]
     Active Substance: CHOLECALCIFEROL
  2. XYREM [Suspect]
     Active Substance: SODIUM OXYBATE
     Indication: CATAPLEXY
     Dosage: 2 G, SECOND DOSE
     Route: 048
     Dates: start: 201012, end: 201106
  3. XYREM [Suspect]
     Active Substance: SODIUM OXYBATE
     Dosage: 4 G, BID
     Route: 048
     Dates: start: 201705, end: 201709
  4. XYREM [Suspect]
     Active Substance: SODIUM OXYBATE
     Dosage: 4 G, FIRST DOSE
     Route: 048
     Dates: start: 201810, end: 201810
  5. ATIVAN [Concomitant]
     Active Substance: LORAZEPAM
  6. XYREM [Suspect]
     Active Substance: SODIUM OXYBATE
     Dosage: 3.75 G, BID
     Route: 048
     Dates: start: 201311, end: 201410
  7. XYREM [Suspect]
     Active Substance: SODIUM OXYBATE
     Dosage: 3 G, SECOND DOSE
     Route: 048
     Dates: start: 201610, end: 201610
  8. PROGESTERONE. [Concomitant]
     Active Substance: PROGESTERONE
  9. FLUOXETINE HCL [Concomitant]
     Active Substance: FLUOXETINE HYDROCHLORIDE
  10. AMOXICILLIN TRIHYDRATE [Concomitant]
     Active Substance: AMOXICILLIN
  11. AZITHROMYCIN ANHYDROUS. [Concomitant]
     Active Substance: AZITHROMYCIN ANHYDROUS
  12. MUCINEX [Concomitant]
     Active Substance: GUAIFENESIN
  13. PATANASE [Concomitant]
     Active Substance: OLOPATADINE HYDROCHLORIDE
  14. DYAZIDE [Concomitant]
     Active Substance: HYDROCHLOROTHIAZIDE\TRIAMTERENE
  15. RITALIN [Concomitant]
     Active Substance: METHYLPHENIDATE HYDROCHLORIDE
  16. ARMOUR THYROID [Concomitant]
     Active Substance: THYROID, PORCINE
  17. ONDANSETRON [Concomitant]
     Active Substance: ONDANSETRON
  18. CYANOCOBALAMIN. [Concomitant]
     Active Substance: CYANOCOBALAMIN
  19. CYCLOBENZAPRINE HYDROCHLORIDE. [Concomitant]
     Active Substance: CYCLOBENZAPRINE HYDROCHLORIDE
  20. CLINDAMYCIN HCL [Concomitant]
     Active Substance: CLINDAMYCIN HYDROCHLORIDE
  21. TRAMADOL HCL [Concomitant]
     Active Substance: TRAMADOL HYDROCHLORIDE
  22. TRAZODONE [Concomitant]
     Active Substance: TRAZODONE HYDROCHLORIDE
  23. ZOLPIDEM TARTRATE. [Concomitant]
     Active Substance: ZOLPIDEM TARTRATE
  24. ESTRADIOL. [Concomitant]
     Active Substance: ESTRADIOL
  25. NUVIGIL [Concomitant]
     Active Substance: ARMODAFINIL
  26. XYREM [Suspect]
     Active Substance: SODIUM OXYBATE
     Dosage: DOSE ADJUSTMENT
     Route: 048
     Dates: start: 201611, end: 201705
  27. XYREM [Suspect]
     Active Substance: SODIUM OXYBATE
     Dosage: 2 G, SECOND DOSE
     Route: 048
     Dates: start: 201810, end: 201810
  28. XYREM [Suspect]
     Active Substance: SODIUM OXYBATE
     Dosage: 4 G, FIRST DOSE
     Route: 048
     Dates: start: 201810
  29. ZYRTEC [Concomitant]
     Active Substance: CETIRIZINE HYDROCHLORIDE
  30. ESGIC [Concomitant]
     Active Substance: ACETAMINOPHEN\BUTALBITAL\CAFFEINE
  31. MAXALT [Concomitant]
     Active Substance: RIZATRIPTAN BENZOATE
  32. CHLORMEZANONE [Concomitant]
     Active Substance: CHLORMEZANONE
  33. SUMATRIPTAN. [Concomitant]
     Active Substance: SUMATRIPTAN
  34. CLONAZEPAM. [Concomitant]
     Active Substance: CLONAZEPAM
  35. PREVIDENT [Concomitant]
     Active Substance: SODIUM FLUORIDE
  36. XYREM [Suspect]
     Active Substance: SODIUM OXYBATE
     Dosage: 4.5 G, BID
     Route: 048
     Dates: start: 201106, end: 201107
  37. XYREM [Suspect]
     Active Substance: SODIUM OXYBATE
     Dosage: 4.5 G, BID
     Route: 048
     Dates: start: 201410, end: 201603
  38. XYREM [Suspect]
     Active Substance: SODIUM OXYBATE
     Dosage: 3.75 G, FIRST DOSE
     Route: 048
     Dates: start: 201610, end: 201611
  39. XYREM [Suspect]
     Active Substance: SODIUM OXYBATE
     Dosage: 3.5 G, SECOND DOSE
     Route: 048
     Dates: start: 201610, end: 201611
  40. XYREM [Suspect]
     Active Substance: SODIUM OXYBATE
     Dosage: 4.5 G, SECOND DOSE
     Route: 048
     Dates: start: 201810
  41. DIPHENHYDRAMINE HYDROCHLORIDE. [Concomitant]
     Active Substance: DIPHENHYDRAMINE HYDROCHLORIDE
  42. CYCLOBENZAPRINE. [Concomitant]
     Active Substance: CYCLOBENZAPRINE
  43. POTASSIUM IODIDE. [Concomitant]
     Active Substance: POTASSIUM IODIDE
  44. ESZOPICLONE. [Concomitant]
     Active Substance: ESZOPICLONE
  45. LIDODERM [Concomitant]
     Active Substance: LIDOCAINE
  46. XYREM [Suspect]
     Active Substance: SODIUM OXYBATE
     Dosage: 4 G, FIRST DOSE
     Route: 048
     Dates: start: 201610, end: 201610
  47. LEVOTHYROXINE. [Concomitant]
     Active Substance: LEVOTHYROXINE
  48. METHYLPREDNISOLONE. [Concomitant]
     Active Substance: METHYLPREDNISOLONE
  49. PROMETHAZINE [Concomitant]
     Active Substance: PROMETHAZINE\PROMETHAZINE HYDROCHLORIDE
  50. NASACORT [Concomitant]
     Active Substance: TRIAMCINOLONE ACETONIDE
  51. CIPROFLOXACIN. [Concomitant]
     Active Substance: CIPROFLOXACIN
  52. XYREM [Suspect]
     Active Substance: SODIUM OXYBATE
     Indication: NARCOLEPSY
     Dosage: 4 G, FIRST DOSE
     Route: 048
     Dates: start: 201012, end: 201106
  53. LIOTHYRONINE SODIUM. [Concomitant]
     Active Substance: LIOTHYRONINE SODIUM
  54. XIPAMIDE [Concomitant]
     Active Substance: XIPAMIDE
  55. FROVA [Concomitant]
     Active Substance: FROVATRIPTAN SUCCINATE
  56. KLONOPIN [Concomitant]
     Active Substance: CLONAZEPAM

REACTIONS (5)
  - Nerve degeneration [Not Recovered/Not Resolved]
  - Pain [Not Recovered/Not Resolved]
  - Spinal disorder [Not Recovered/Not Resolved]
  - Back injury [Not Recovered/Not Resolved]
  - Nerve compression [Unknown]

NARRATIVE: CASE EVENT DATE: 201901
